FAERS Safety Report 5084228-6 (Version None)
Quarter: 2006Q3

REPORT INFORMATION
  Report Type: 
  Country: None (occurrence: None)
  Receive Date: 20060821
  Receipt Date: 20060214
  Transmission Date: 20061208
  Serious: No
  Sender: FDA-Public Use
  Company Number: US-BRISTOL-MYERS SQUIBB COMPANY-13282926

PATIENT
  Age: 41 Year
  Sex: Female
  Weight: 67 kg

DRUGS (7)
  1. TEQUIN [Suspect]
     Indication: NASOPHARYNGITIS
     Route: 048
     Dates: start: 20050909, end: 20050919
  2. TEQUIN [Suspect]
     Indication: DYSPNOEA
     Route: 048
     Dates: start: 20050909, end: 20050919
  3. TEQUIN [Suspect]
     Indication: RESPIRATORY TRACT CONGESTION
     Route: 048
     Dates: start: 20050909, end: 20050919
  4. TEQUIN [Suspect]
     Indication: BRONCHITIS
     Route: 048
     Dates: start: 20050909, end: 20050919
  5. ALBUTEROL [Concomitant]
  6. ADVAIR DISKUS 100/50 [Concomitant]
  7. TYLENOL [Concomitant]

REACTIONS (1)
  - TENDONITIS [None]
